FAERS Safety Report 5748423-2 (Version None)
Quarter: 2008Q2

REPORT INFORMATION
  Report Type: 
  Country: None (occurrence: None)
  Receive Date: 20080523
  Receipt Date: 20080519
  Transmission Date: 20081010
  Serious: Yes (Other)
  Sender: FDA-Public Use
  Company Number: ES-MERCK-0805ESP00033

PATIENT
  Age: 70 Year
  Sex: Male

DRUGS (4)
  1. INVANZ [Suspect]
     Indication: BACTERIAL INFECTION
     Route: 042
     Dates: start: 20080101, end: 20080101
  2. INVANZ [Suspect]
     Route: 042
     Dates: start: 20080101, end: 20080101
  3. [THERAPY UNSPECIFIED] [Concomitant]
     Route: 065
  4. [THERAPY UNSPECIFIED] [Concomitant]
     Indication: DEPRESSION
     Route: 065

REACTIONS (4)
  - CONFUSIONAL STATE [None]
  - DISORIENTATION [None]
  - HALLUCINATION, VISUAL [None]
  - MYOCLONUS [None]
